FAERS Safety Report 17206280 (Version 1)
Quarter: 2020Q1

REPORT INFORMATION
  Report Type: Spontaneous
  Country: US (occurrence: US)
  Receive Date: 20191226
  Receipt Date: 20191226
  Transmission Date: 20200409
  Serious: Yes (Death, Life-Threatening, Hospitalization, Disabling, Other)
  Sender: FDA-Public Use
  Company Number: None

PATIENT
  Sex: Male
  Weight: 63 kg

DRUGS (10)
  1. BENZONATATE. [Concomitant]
     Active Substance: BENZONATATE
  2. ACETAMENOPHEN 325 [Concomitant]
  3. DEXAMETHESONE [Concomitant]
  4. ONADASTRI [Concomitant]
  5. CLOPIDRIL [Concomitant]
  6. DRONABINOL. [Concomitant]
     Active Substance: DRONABINOL
  7. INV PROFOUND OLAPARIB 150MG TAB [Suspect]
     Active Substance: OLAPARIB
     Indication: PROSTATE CANCER
     Dosage: ?          QUANTITY:2 TABLET(S);?
     Route: 048
     Dates: start: 20181001, end: 20181001
  8. ELIQUIS [Concomitant]
     Active Substance: APIXABAN
  9. MORPHINE 30MG [Concomitant]
  10. MORPHINE IR 15MG [Concomitant]

REACTIONS (10)
  - Pain [None]
  - Bedridden [None]
  - Fatigue [None]
  - Decreased appetite [None]
  - Constipation [None]
  - Spinal cord compression [None]
  - Metastases to lymph nodes [None]
  - Gait inability [None]
  - Fall [None]
  - Prostatic specific antigen increased [None]
